FAERS Safety Report 8566271 (Version 3)
Quarter: 2012Q4

REPORT INFORMATION
  Report Type: 
  Country: SI (occurrence: SI)
  Receive Date: 20120517
  Receipt Date: 20120905
  Transmission Date: 20130627
  Serious: Yes (Hospitalization)
  Sender: FDA-Public Use
  Company Number: SI-ELI_LILLY_AND_COMPANY-SI201205002235

PATIENT
  Age: 20 Year
  Sex: Female

DRUGS (7)
  1. OLANZAPINE [Suspect]
     Indication: SCHIZOPHRENIA, PARANOID TYPE
     Dosage: 210 mg, weekly (1/W)
     Route: 030
     Dates: start: 20120308, end: 20120308
  2. OLANZAPINE [Suspect]
     Dosage: 300 mg, every 2 weeks
     Route: 030
     Dates: start: 20120315
  3. INVEGA [Concomitant]
     Dosage: 9 mg, qd
     Dates: end: 20120412
  4. INVEGA [Concomitant]
     Dosage: 3 mg, qd
     Dates: start: 20120412
  5. ABILIFY [Concomitant]
     Dosage: 30 mg, qd
  6. ASENTRA [Concomitant]
     Dosage: 100 mg, qd
  7. QUETIAPINE FUMARATE [Concomitant]
     Dosage: 100 mg, qd

REACTIONS (12)
  - Paraesthesia [Recovered/Resolved]
  - Malaise [Recovered/Resolved]
  - Delirium [Recovered/Resolved]
  - Disorientation [Recovered/Resolved]
  - Gait disturbance [Recovered/Resolved]
  - Dysarthria [Recovered/Resolved]
  - Hallucination [Recovered/Resolved]
  - Tachycardia [Recovered/Resolved]
  - Pyrexia [Recovered/Resolved]
  - Mydriasis [Recovered/Resolved]
  - Agitation [Recovered/Resolved]
  - Delusion [Recovered/Resolved]
